FAERS Safety Report 5481389-1 (Version None)
Quarter: 2007Q4

REPORT INFORMATION
  Report Type: 
  Country: None (occurrence: None)
  Receive Date: 20071010
  Receipt Date: 20071010
  Transmission Date: 20080405
  Serious: Yes (Other)
  Sender: FDA-Public Use
  Company Number: A0686873A

PATIENT
  Age: 36 Year
  Sex: Female

DRUGS (4)
  1. GAVISCON ACID BREAKTHROUGH FORMULA [Suspect]
     Dosage: 2TAB SINGLE DOSE
     Route: 048
     Dates: start: 20071009, end: 20071009
  2. MULTIPLE MEDICATIONS [Concomitant]
  3. NARCOTICS [Concomitant]
  4. GLYCOLAX [Concomitant]

REACTIONS (6)
  - CONVULSION [None]
  - MIGRAINE [None]
  - SENSORY DISTURBANCE [None]
  - SWOLLEN TONGUE [None]
  - TREMOR [None]
  - VISION BLURRED [None]
